FAERS Safety Report 8617353-0 (Version None)
Quarter: 2012Q3

REPORT INFORMATION
  Report Type: 
  Country: None (occurrence: None)
  Receive Date: 20120823
  Receipt Date: 20120806
  Transmission Date: 20120928
  Serious: Yes (Hospitalization)
  Sender: FDA-Public Use
  Company Number: JP-009507513-1203USA03002

PATIENT

DRUGS (5)
  1. EPINASTINE HYDROCHLORIDE [Concomitant]
     Indication: MYCOSIS FUNGOIDES
     Dosage: 20 MG, QD
     Route: 048
     Dates: start: 20110901
  2. PERIACTIN [Concomitant]
     Indication: MYCOSIS FUNGOIDES
     Dosage: 20 MG
     Route: 048
     Dates: start: 20120309, end: 20120313
  3. EPINAZION [Concomitant]
     Indication: MYCOSIS FUNGOIDES
     Dosage: 20 MG, ONCE
     Route: 048
     Dates: start: 20120308, end: 20120404
  4. AZUCURENIN S [Concomitant]
     Indication: PROPHYLAXIS
     Dosage: 2 G
     Route: 048
     Dates: start: 20120309, end: 20120313
  5. ZOLINZA [Suspect]
     Indication: MYCOSIS FUNGOIDES
     Dosage: 400 MG, QD
     Route: 048
     Dates: start: 20120210, end: 20120309

REACTIONS (5)
  - DEHYDRATION [None]
  - PYREXIA [None]
  - MALAISE [None]
  - DECREASED APPETITE [None]
  - RENAL FAILURE [None]
